FAERS Safety Report 8807448 (Version 2)
Quarter: 2012Q4

REPORT INFORMATION
  Report Type: Report from Study
  Country: JP (occurrence: JP)
  Receive Date: 20120925
  Receipt Date: 20121019
  Transmission Date: 20130627
  Serious: Yes (Hospitalization)
  Sender: FDA-Public Use
  Company Number: JP-BAXTER-2012BAX017682

PATIENT
  Age: 35 Year
  Sex: Female
  Weight: 59 kg

DRUGS (6)
  1. CYCLOPHOSPHAMIDE FOR INJECTION, USP [Suspect]
     Indication: MALIGNANT BREAST NEOPLASM
     Route: 042
     Dates: start: 20120625
  2. CYCLOPHOSPHAMIDE FOR INJECTION, USP [Suspect]
     Route: 042
     Dates: start: 20120807
  3. 5-FLUOROURACIL [Suspect]
     Indication: MALIGNANT BREAST NEOPLASM
     Route: 042
     Dates: start: 20120625
  4. 5-FLUOROURACIL [Suspect]
     Route: 042
     Dates: start: 20120807
  5. EPIRUBICIN HYDROCHLORIDE [Suspect]
     Indication: MALIGNANT BREAST NEOPLASM
     Route: 042
     Dates: start: 20120625
  6. EPIRUBICIN HYDROCHLORIDE [Suspect]
     Route: 042
     Dates: start: 20120807

REACTIONS (2)
  - Febrile neutropenia [Recovered/Resolved]
  - Pneumonia bacterial [Recovered/Resolved]
